FAERS Safety Report 6639093-X (Version None)
Quarter: 2010Q1

REPORT INFORMATION
  Report Type: 
  Country: None (occurrence: None)
  Receive Date: 20100312
  Receipt Date: 20100226
  Transmission Date: 20100710
  Serious: Yes (Hospitalization)
  Sender: FDA-Public Use
  Company Number: 008026

PATIENT
  Age: 22 Year
  Sex: Female
  Weight: 50 kg

DRUGS (6)
  1. VIMPAT [Suspect]
     Indication: EPILEPSY
     Dosage: (50 MG BID ORAL), (100 MG BID ORAL), (50 MG BID ORAL),, (150 MG, 50 MG AM AND 100 MG PM ORAL)
     Route: 048
     Dates: start: 20091214, end: 20091228
  2. VIMPAT [Suspect]
     Indication: EPILEPSY
     Dosage: (50 MG BID ORAL), (100 MG BID ORAL), (50 MG BID ORAL),, (150 MG, 50 MG AM AND 100 MG PM ORAL)
     Route: 048
     Dates: start: 20091228, end: 20100101
  3. VIMPAT [Suspect]
     Indication: EPILEPSY
     Dosage: (50 MG BID ORAL), (100 MG BID ORAL), (50 MG BID ORAL),, (150 MG, 50 MG AM AND 100 MG PM ORAL)
     Route: 048
     Dates: start: 20100101, end: 20100121
  4. VIMPAT [Suspect]
     Indication: EPILEPSY
     Dosage: (50 MG BID ORAL), (100 MG BID ORAL), (50 MG BID ORAL),, (150 MG, 50 MG AM AND 100 MG PM ORAL)
     Route: 048
     Dates: start: 20100121, end: 20100211
  5. LYRICA [Concomitant]
  6. VENOFER [Concomitant]

REACTIONS (4)
  - AGGRESSION [None]
  - COMPLEX PARTIAL SEIZURES [None]
  - FATIGUE [None]
  - GRAND MAL CONVULSION [None]
